FAERS Safety Report 14173368 (Version 1)
Quarter: 2017Q4

REPORT INFORMATION
  Report Type: Spontaneous
  Country: US (occurrence: None)
  Receive Date: 20171109
  Receipt Date: 20171109
  Transmission Date: 20180321
  Serious: No
  Sender: FDA-Public Use
  Company Number: None

PATIENT
  Sex: Male
  Weight: 123.83 kg

DRUGS (1)
  1. TALTZ [Suspect]
     Active Substance: IXEKIZUMAB
     Indication: PSORIASIS
     Route: 058
     Dates: start: 201707

REACTIONS (7)
  - Rash [None]
  - Disease recurrence [None]
  - Otorrhoea [None]
  - Drug ineffective [None]
  - Therapy cessation [None]
  - Eye discharge [None]
  - Skin exfoliation [None]
